FAERS Safety Report 4582861-9 (Version None)
Quarter: 2005Q1

REPORT INFORMATION
  Report Type: 
  Country: None (occurrence: None)
  Receive Date: 20050215
  Receipt Date: 20050117
  Transmission Date: 20050727
  Serious: Yes (Hospitalization)
  Sender: FDA-Public Use
  Company Number: PHFR2005GB00606

PATIENT
  Age: 48 None
  Sex: Male

DRUGS (6)
  1. CLOZARIL [Suspect]
     Indication: SCHIZOPHRENIA
     Dosage: 550MG/DAY
     Route: 048
     Dates: start: 20041026
  2. CLOZARIL [Suspect]
     Dosage: 20 CLOZARIL TABLETS
     Route: 048
  3. MIRTAZAPINE [Concomitant]
     Dosage: 15 MG/SAY
     Route: 048
  4. OMEPRAZOLE [Concomitant]
     Dosage: 20 MG/DAY
     Route: 048
  5. MORPHINE SULFATE [Concomitant]
     Dosage: 180 MG/DAY
  6. DESLORATADINE [Concomitant]
     Dosage: 5 MG/DAY
     Route: 048

REACTIONS (3)
  - CONVULSION [None]
  - DYSTONIA [None]
  - OVERDOSE [None]
